FAERS Safety Report 20278644 (Version 1)
Quarter: 2022Q1

REPORT INFORMATION
  Report Type: Spontaneous
  Country: US (occurrence: US)
  Receive Date: 20220103
  Receipt Date: 20220103
  Transmission Date: 20220423
  Serious: No
  Sender: FDA-Public Use
  Company Number: US-ELI_LILLY_AND_COMPANY-US202112009239

PATIENT

DRUGS (2)
  1. ALIMTA [Suspect]
     Active Substance: PEMETREXED DISODIUM
     Indication: Mesothelioma
     Dosage: 2000 MG, UNKNOWN
     Route: 065
  2. PLATINOL [Concomitant]
     Active Substance: CISPLATIN
     Indication: Mesothelioma

REACTIONS (1)
  - Overdose [Unknown]
